FAERS Safety Report 4783696-4 (Version None)
Quarter: 2005Q3

REPORT INFORMATION
  Report Type: 
  Country: None (occurrence: None)
  Receive Date: 20050928
  Receipt Date: 20050915
  Transmission Date: 20060218
  Serious: Yes (Death, Hospitalization, Other)
  Sender: FDA-Public Use
  Company Number: 2005130893

PATIENT
  Age: 80 Year
  Sex: Male
  Weight: 80 kg

DRUGS (9)
  1. CELEBREX [Suspect]
     Indication: BACK PAIN
     Dosage: ORAL
     Route: 048
     Dates: start: 20041106, end: 20041107
  2. CELEBREX [Suspect]
     Indication: BONE PAIN
     Dosage: ORAL
     Route: 048
     Dates: start: 20041106, end: 20041107
  3. KETOPROFEN [Suspect]
     Indication: PAIN
     Dosage: SEE IMAGE
     Dates: start: 20041023, end: 20041023
  4. KETOPROFEN [Suspect]
     Indication: PAIN
     Dosage: SEE IMAGE
     Dates: start: 20041103, end: 20041106
  5. SPASFON (PHLOROGLUCINOL, TRIMETHYLPHLOROGLUCINOL) [Suspect]
     Indication: ABDOMINAL PAIN
     Dosage: INTRAVENOUS
     Route: 042
     Dates: start: 20041106, end: 20041107
  6. MORPHINE [Suspect]
     Indication: ILL-DEFINED DISORDER
     Dosage: INTRAVENOUS
     Route: 042
     Dates: start: 20041106, end: 20041107
  7. OMEPRAZOLE [Suspect]
     Indication: ILL-DEFINED DISORDER
     Dosage: INTRAVENOUS
     Route: 042
     Dates: start: 20041106, end: 20041107
  8. ROCEFIN (CEFTRIAXONE SODIUM) [Suspect]
     Indication: STAPHYLOCOCCAL BACTERAEMIA
     Dates: start: 20041106, end: 20041107
  9. GENTAMICIN [Concomitant]

REACTIONS (17)
  - ABDOMINAL PAIN [None]
  - BACK PAIN [None]
  - BLOOD CULTURE POSITIVE [None]
  - CEREBRAL ARTERY EMBOLISM [None]
  - EMBOLISM [None]
  - ENCEPHALITIS [None]
  - ENDOCARDITIS STAPHYLOCOCCAL [None]
  - HYPEROSMOLAR STATE [None]
  - INTERVERTEBRAL DISCITIS [None]
  - MULTI-ORGAN FAILURE [None]
  - PERICARDIAL EFFUSION [None]
  - PLEURAL EFFUSION [None]
  - RENAL FAILURE [None]
  - RESPIRATORY DISORDER [None]
  - SEPTIC EMBOLUS [None]
  - SEPTIC SHOCK [None]
  - STAPHYLOCOCCAL INFECTION [None]
